FAERS Safety Report 14866204 (Version 2)
Quarter: 2018Q2

REPORT INFORMATION
  Report Type: Spontaneous
  Country: US (occurrence: US)
  Receive Date: 20180508
  Receipt Date: 20180601
  Transmission Date: 20180711
  Serious: Yes (Other)
  Sender: FDA-Public Use
  Company Number: US-BIOGEN-2018BI00569082

PATIENT
  Age: 31 Year
  Sex: Female
  Weight: 88.98 kg

DRUGS (1)
  1. TYSABRI [Suspect]
     Active Substance: NATALIZUMAB
     Indication: RELAPSING-REMITTING MULTIPLE SCLEROSIS
     Route: 050
     Dates: start: 20140917, end: 2017

REACTIONS (2)
  - Blood pressure systolic increased [Unknown]
  - Osteonecrosis [Recovered/Resolved]

NARRATIVE: CASE EVENT DATE: 2014
